FAERS Safety Report 8370907-1 (Version None)
Quarter: 2012Q2

REPORT INFORMATION
  Report Type: 
  Country: None (occurrence: None)
  Receive Date: 20120517
  Receipt Date: 20120504
  Transmission Date: 20120825
  Serious: Yes (Hospitalization, Other)
  Sender: FDA-Public Use
  Company Number: UCM201205-000042

PATIENT
  Age: 5 Year
  Sex: Male

DRUGS (7)
  1. DIVALPOREX SODIUM (DIVALPROEX SODIUM) (DIVALPROEX SODIUM) [Suspect]
  2. METHYLPHENIDATE [Concomitant]
     Indication: ABNORMAL BEHAVIOUR
  3. LEVETIRACETAM [Suspect]
  4. ARIPIPRAZOLE [Suspect]
     Dosage: 2.5 MG; 5 MG; 2.5 MG; 5 MG TWO TIMES DAILY
  5. DEXTROAMPHETAMINE [Suspect]
  6. CLORAZEPATE DIPOTASSIUM [Suspect]
  7. LAMOTRIGINE [Suspect]
     Dosage: 100 MG TWO TIMES A DAY

REACTIONS (16)
  - ATAXIA [None]
  - CONVULSION [None]
  - TOXICITY TO VARIOUS AGENTS [None]
  - RASH [None]
  - AGGRESSION [None]
  - GAIT DISTURBANCE [None]
  - MUSCULAR WEAKNESS [None]
  - ELECTROMYOGRAM ABNORMAL [None]
  - DYSKINESIA [None]
  - ABNORMAL BEHAVIOUR [None]
  - CONDITION AGGRAVATED [None]
  - THROMBOCYTOPENIA [None]
  - CHOREA [None]
  - NERVOUS SYSTEM DISORDER [None]
  - COORDINATION ABNORMAL [None]
  - AFFECT LABILITY [None]
